FAERS Safety Report 17876982 (Version 3)
Quarter: 2020Q2

REPORT INFORMATION
  Report Type: Report from Study
  Country: HU (occurrence: HU)
  Receive Date: 20200609
  Receipt Date: 20200624
  Transmission Date: 20200714
  Serious: Yes (Hospitalization, Other)
  Sender: FDA-Public Use
  Company Number: HU-UCBSA-2020023015

PATIENT
  Age: 81 Year
  Sex: Female

DRUGS (1)
  1. BRIVARACETAM [Suspect]
     Active Substance: BRIVARACETAM
     Indication: EPILEPSY
     Dosage: 100 MILLIGRAM, 2X/DAY (BID)
     Route: 048

REACTIONS (3)
  - Dementia Alzheimer^s type [Unknown]
  - Pneumonia [Recovered/Resolved with Sequelae]
  - Decubitus ulcer [Unknown]

NARRATIVE: CASE EVENT DATE: 20200321
